FAERS Safety Report 17147043 (Version 1)
Quarter: 2019Q4

REPORT INFORMATION
  Report Type: Spontaneous
  Country: US (occurrence: US)
  Receive Date: 20191212
  Receipt Date: 20191212
  Transmission Date: 20200122
  Serious: Yes (Other)
  Sender: FDA-Public Use
  Company Number: US-ZYDUS-044458

PATIENT
  Sex: Female

DRUGS (3)
  1. AZATHIOPRINE. [Suspect]
     Active Substance: AZATHIOPRINE
     Indication: BIRDSHOT CHORIORETINOPATHY
  2. MYCOPHENOLIC ACID. [Suspect]
     Active Substance: MYCOPHENOLIC ACID
     Indication: BIRDSHOT CHORIORETINOPATHY
  3. CICLOSPORIN [Suspect]
     Active Substance: CYCLOSPORINE
     Indication: BIRDSHOT CHORIORETINOPATHY

REACTIONS (2)
  - Nephropathy toxic [Unknown]
  - Diarrhoea [Unknown]
